FAERS Safety Report 12431629 (Version 1)
Quarter: 2016Q2

REPORT INFORMATION
  Report Type: Spontaneous
  Country: US (occurrence: None)
  Receive Date: 20160602
  Receipt Date: 20160602
  Transmission Date: 20160815
  Serious: Yes (Other)
  Sender: FDA-Public Use
  Company Number: None

PATIENT
  Age: 49 Year
  Sex: Male
  Weight: 87.54 kg

DRUGS (6)
  1. THYROXINE [Concomitant]
     Active Substance: LEVOTHYROXINE
  2. SIMVASTATIN. [Concomitant]
     Active Substance: SIMVASTATIN
  3. PANTOPRAZOLE [Concomitant]
     Active Substance: PANTOPRAZOLE SODIUM
  4. CITALOPRAM [Concomitant]
     Active Substance: CITALOPRAM HYDROBROMIDE
  5. MONTELUKAST [Concomitant]
     Active Substance: MONTELUKAST SODIUM
  6. DOXYCYCLINE HYCLATE 100, 100 MG [Suspect]
     Active Substance: DOXYCYCLINE HYCLATE
     Indication: FINGER AMPUTATION
     Route: 048
     Dates: start: 20160527, end: 20160601

REACTIONS (7)
  - Somnolence [None]
  - Vision blurred [None]
  - Asthenia [None]
  - Fatigue [None]
  - Abdominal pain upper [None]
  - Feeling cold [None]
  - Vomiting [None]

NARRATIVE: CASE EVENT DATE: 20160601
